FAERS Safety Report 26108213 (Version 1)
Quarter: 2025Q4

REPORT INFORMATION
  Report Type: Spontaneous
  Country: EU (occurrence: EU)
  Receive Date: 20251201
  Receipt Date: 20251201
  Transmission Date: 20260118
  Serious: Yes (Other)
  Sender: MYLAN
  Company Number: EU-MYLANLABS-2025M1055388

PATIENT
  Age: 45 Year
  Sex: Male

DRUGS (12)
  1. OXALIPLATIN [Suspect]
     Active Substance: OXALIPLATIN
     Indication: Cholangiocarcinoma
     Dosage: UNK, CYCLE (12 CYCLES)
     Dates: start: 202211, end: 202305
  2. OXALIPLATIN [Suspect]
     Active Substance: OXALIPLATIN
     Dosage: UNK, CYCLE (12 CYCLES)
     Route: 065
     Dates: start: 202211, end: 202305
  3. OXALIPLATIN [Suspect]
     Active Substance: OXALIPLATIN
     Dosage: UNK, CYCLE (12 CYCLES)
     Route: 065
     Dates: start: 202211, end: 202305
  4. OXALIPLATIN [Suspect]
     Active Substance: OXALIPLATIN
     Dosage: UNK, CYCLE (12 CYCLES)
     Dates: start: 202211, end: 202305
  5. FLUOROURACIL [Suspect]
     Active Substance: FLUOROURACIL
     Indication: Cholangiocarcinoma
     Dosage: UNK, CYCLE (12 CYCLES)
     Dates: start: 202211, end: 202305
  6. FLUOROURACIL [Suspect]
     Active Substance: FLUOROURACIL
     Dosage: UNK, CYCLE (12 CYCLES)
     Route: 065
     Dates: start: 202211, end: 202305
  7. FLUOROURACIL [Suspect]
     Active Substance: FLUOROURACIL
     Dosage: UNK, CYCLE (12 CYCLES)
     Route: 065
     Dates: start: 202211, end: 202305
  8. FLUOROURACIL [Suspect]
     Active Substance: FLUOROURACIL
     Dosage: UNK, CYCLE (12 CYCLES)
     Dates: start: 202211, end: 202305
  9. LEUCOVORIN [Suspect]
     Active Substance: LEUCOVORIN\LEUCOVORIN CALCIUM
     Indication: Cholangiocarcinoma
     Dosage: UNK, CYCLE (12 CYCLES)
     Dates: start: 202211, end: 202305
  10. LEUCOVORIN [Suspect]
     Active Substance: LEUCOVORIN\LEUCOVORIN CALCIUM
     Dosage: UNK, CYCLE (12 CYCLES)
     Route: 065
     Dates: start: 202211, end: 202305
  11. LEUCOVORIN [Suspect]
     Active Substance: LEUCOVORIN\LEUCOVORIN CALCIUM
     Dosage: UNK, CYCLE (12 CYCLES)
     Route: 065
     Dates: start: 202211, end: 202305
  12. LEUCOVORIN [Suspect]
     Active Substance: LEUCOVORIN\LEUCOVORIN CALCIUM
     Dosage: UNK, CYCLE (12 CYCLES)
     Dates: start: 202211, end: 202305

REACTIONS (2)
  - Haematotoxicity [Unknown]
  - Drug tolerance decreased [Unknown]
